FAERS Safety Report 9995385 (Version 1)
Quarter: 2014Q1

REPORT INFORMATION
  Report Type: Report from Study
  Country: FR (occurrence: FR)
  Receive Date: 20140311
  Receipt Date: 20140311
  Transmission Date: 20141002
  Serious: Yes (Hospitalization)
  Sender: FDA-Public Use
  Company Number: FR-ROCHE-1358154

PATIENT
  Sex: Female

DRUGS (5)
  1. RITUXIMAB [Suspect]
     Indication: RHEUMATOID ARTHRITIS
     Route: 042
     Dates: start: 20070601
  2. METHOTREXATE [Concomitant]
  3. LEFLUNOMIDE [Concomitant]
  4. METHYLPREDNISOLONE [Concomitant]
     Route: 065
  5. PARACETAMOL [Concomitant]
     Route: 065
     Dates: end: 20090803

REACTIONS (11)
  - Hernial eventration [Unknown]
  - Infusion related reaction [Recovered/Resolved]
  - Muscle spasms [Recovered/Resolved]
  - Rhinitis [Recovered/Resolved]
  - Bronchitis [Recovered/Resolved]
  - Ear infection [Recovered/Resolved]
  - Hypersensitivity [Recovered/Resolved]
  - Breast cyst [Not Recovered/Not Resolved]
  - Furuncle [Recovered/Resolved]
  - Rhinitis [Recovered/Resolved]
  - Pharyngitis [Recovered/Resolved]
